FAERS Safety Report 21368588 (Version 1)
Quarter: 2022Q3

REPORT INFORMATION
  Report Type: Spontaneous
  Country: US (occurrence: US)
  Receive Date: 20220923
  Receipt Date: 20220923
  Transmission Date: 20221026
  Serious: No
  Sender: FDA-Public Use
  Company Number: US-AMGEN-USASP2022163166

PATIENT
  Sex: Female

DRUGS (3)
  1. OTEZLA [Suspect]
     Active Substance: APREMILAST
     Indication: Product used for unknown indication
     Dosage: UNK
     Route: 065
  2. DUPIXENT [Concomitant]
     Active Substance: DUPILUMAB
     Indication: Dermatitis
     Dosage: 300 MILLIGRAM
     Route: 058
  3. DUPIXENT [Concomitant]
     Active Substance: DUPILUMAB
     Indication: Psoriasis

REACTIONS (2)
  - Illness [Unknown]
  - Nausea [Unknown]
